FAERS Safety Report 5650438-X (Version None)
Quarter: 2008Q1

REPORT INFORMATION
  Report Type: 
  Country: None (occurrence: None)
  Receive Date: 20080304
  Receipt Date: 20080304
  Transmission Date: 20080703
  Serious: Yes (Hospitalization)
  Sender: FDA-Public Use
  Company Number: None

PATIENT
  Sex: Male
  Weight: 53 kg

DRUGS (2)
  1. FLUOROURACIL [Suspect]
     Dosage: 3230 MG
  2. LEUCOVORIN CALCIUM [Suspect]
     Dosage: 150 MG

REACTIONS (4)
  - ADVERSE DRUG REACTION [None]
  - FALL [None]
  - HIP FRACTURE [None]
  - NEUTROPENIA [None]
